FAERS Safety Report 25643957 (Version 1)
Quarter: 2025Q3

REPORT INFORMATION
  Report Type: Spontaneous
  Country: US (occurrence: US)
  Receive Date: 20250805
  Receipt Date: 20250805
  Transmission Date: 20251020
  Serious: No
  Sender: LEADING PHARMA
  Company Number: US-LEADINGPHARMA-US-2025LEASPO00135

PATIENT

DRUGS (2)
  1. METOLAZONE [Suspect]
     Active Substance: METOLAZONE
     Indication: Swelling
     Route: 065
  2. BUMEX [Suspect]
     Active Substance: BUMETANIDE
     Indication: Swelling
     Route: 065

REACTIONS (8)
  - Myalgia [Unknown]
  - Feeling abnormal [Unknown]
  - Pain [Unknown]
  - Pain in extremity [Unknown]
  - Dyspnoea [Unknown]
  - Abdominal pain upper [Unknown]
  - Headache [Unknown]
  - Fatigue [Unknown]
